FAERS Safety Report 10050100 (Version 1)
Quarter: 2014Q2

REPORT INFORMATION
  Report Type: Spontaneous
  Country: GB (occurrence: GB)
  Receive Date: 20140401
  Receipt Date: 20140401
  Transmission Date: 20141212
  Serious: Yes (Life-Threatening, Hospitalization, Other)
  Sender: FDA-Public Use
  Company Number: GB-DRREDDYS-GER/UKI/14/0039303

PATIENT
  Age: 40 Year
  Sex: Male

DRUGS (8)
  1. RISPERIDONE [Suspect]
     Indication: PRODUCT USED FOR UNKNOWN INDICATION
     Dates: end: 201301
  2. OLANZAPINE [Suspect]
     Indication: ANXIETY
     Route: 048
     Dates: start: 20140227, end: 20140306
  3. OLANZAPINE [Suspect]
     Indication: ASPERGER^S DISORDER
  4. IBUPROFEN [Concomitant]
     Indication: PAIN
     Route: 048
     Dates: start: 20140225, end: 20140306
  5. IBUPROFEN [Concomitant]
     Indication: SEDATION
  6. LORAZEPAM [Concomitant]
     Indication: SEDATION
     Route: 048
     Dates: start: 20140306
  7. PARACETAMOL [Concomitant]
     Indication: PAIN
     Route: 048
     Dates: start: 20140225, end: 20140306
  8. TRAZODONE [Concomitant]
     Indication: ANXIETY
     Route: 048
     Dates: start: 201312

REACTIONS (3)
  - Liver function test abnormal [Recovering/Resolving]
  - Hepatotoxicity [Recovering/Resolving]
  - Hyperprolactinaemia [Unknown]
